FAERS Safety Report 19941839 (Version 1)
Quarter: 2021Q4

REPORT INFORMATION
  Report Type: Spontaneous
  Country: IT (occurrence: IT)
  Receive Date: 20211011
  Receipt Date: 20211011
  Transmission Date: 20220303
  Serious: Yes (Death)
  Sender: FDA-Public Use
  Company Number: None

PATIENT
  Age: 37 Year
  Sex: Female
  Weight: 57 kg

DRUGS (1)
  1. KYMRIAH [Suspect]
     Active Substance: TISAGENLECLEUCEL
     Indication: Lymphoma
     Dosage: 160 MIU, TOTAL
     Route: 042
     Dates: start: 20210113, end: 20210113

REACTIONS (2)
  - Disease progression [Fatal]
  - Cytopenia [Fatal]

NARRATIVE: CASE EVENT DATE: 20210209
